FAERS Safety Report 20652630 (Version 2)
Quarter: 2022Q2

REPORT INFORMATION
  Report Type: Report from Study
  Country: US (occurrence: US)
  Receive Date: 20220330
  Receipt Date: 20220424
  Transmission Date: 20220721
  Serious: Yes (Other)
  Sender: FDA-Public Use
  Company Number: US-BRISTOL-MYERS SQUIBB COMPANY-2022-011513

PATIENT
  Age: 62 Year
  Sex: Female
  Weight: 120 kg

DRUGS (2)
  1. REVLIMID [Suspect]
     Active Substance: LENALIDOMIDE
     Indication: Plasma cell myeloma
     Dosage: STRENGTH : 10 MG CAPSULE 28/BTL, 1 CAPSULE AT BEDTIME BY MOUTH.
     Route: 048
     Dates: start: 20220203
  2. REVLIMID [Suspect]
     Active Substance: LENALIDOMIDE
     Indication: Plasma cell myeloma

REACTIONS (4)
  - White blood cell count decreased [Unknown]
  - Lower limb fracture [Unknown]
  - Multiple fractures [Unknown]
  - Mobility decreased [Unknown]
